FAERS Safety Report 12071621 (Version 1)
Quarter: 2016Q1

REPORT INFORMATION
  Report Type: Spontaneous
  Country: AR (occurrence: AR)
  Receive Date: 20160212
  Receipt Date: 20160212
  Transmission Date: 20160526
  Serious: Yes (Other)
  Sender: FDA-Public Use
  Company Number: AR-AMGEN-ARGSP2016016140

PATIENT
  Age: 62 Year
  Sex: Female

DRUGS (1)
  1. ENBREL [Suspect]
     Active Substance: ETANERCEPT
     Indication: RHEUMATOID ARTHRITIS
     Dosage: 50 MG, WEEKLY
     Route: 065
     Dates: start: 20110112

REACTIONS (8)
  - Rheumatoid arthritis [Not Recovered/Not Resolved]
  - Urinary tract discomfort [Recovering/Resolving]
  - Dysuria [Recovering/Resolving]
  - Urinary tract infection [Recovering/Resolving]
  - Abasia [Recovering/Resolving]
  - Condition aggravated [Not Recovered/Not Resolved]
  - Fear [Not Recovered/Not Resolved]
  - Arthritis [Recovering/Resolving]

NARRATIVE: CASE EVENT DATE: 201510
